FAERS Safety Report 8462299-4 (Version None)
Quarter: 2012Q2

REPORT INFORMATION
  Report Type: 
  Country: None (occurrence: None)
  Receive Date: 20120625
  Receipt Date: 20120615
  Transmission Date: 20120825
  Serious: Yes (Hospitalization, Other)
  Sender: FDA-Public Use
  Company Number: US-GENZYME-THYM-1002409

PATIENT
  Sex: Female
  Weight: 60.53 kg

DRUGS (225)
  1. THYMOGLOBULIN [Suspect]
  2. LASIX [Concomitant]
     Dosage: 80 MG, ONCE
     Route: 042
     Dates: start: 20110411, end: 20110411
  3. CELL CEPT [Concomitant]
     Dosage: 500 MG, TID
     Route: 048
     Dates: start: 20110928, end: 20110929
  4. CELL CEPT [Concomitant]
     Dosage: 1 G, BID
     Route: 048
     Dates: start: 20110408, end: 20110408
  5. CELL CEPT [Concomitant]
     Dosage: 750 MG, BID
     Route: 048
     Dates: start: 20110418, end: 20110427
  6. CELL CEPT [Concomitant]
     Dosage: 500 MG, TID
     Route: 048
     Dates: start: 20110531, end: 20110601
  7. PROCRIT [Concomitant]
     Indication: PRODUCT USED FOR UNKNOWN INDICATION
     Dosage: 16000 U, UNK
     Route: 058
  8. DELTASONE [Concomitant]
     Dosage: 20 MG, ONCE
     Route: 048
  9. DILAUDID [Concomitant]
     Indication: ANALGESIC THERAPY
     Route: 042
  10. PERCOCET [Concomitant]
     Indication: PAIN
     Dosage: UNK
     Route: 048
  11. ACETAMINOPHEN [Concomitant]
     Indication: PRODUCT USED FOR UNKNOWN INDICATION
     Dosage: 650 MG, Q4HR
     Route: 048
  12. ACETAMINOPHEN [Concomitant]
     Dosage: 650 MG, ONCE
     Route: 048
     Dates: start: 20110422, end: 20110422
  13. ACETAMINOPHEN [Concomitant]
  14. PROCHLORPERAZINE [Concomitant]
     Indication: PRODUCT USED FOR UNKNOWN INDICATION
     Dosage: 10 MG, ONCE
     Route: 042
     Dates: start: 20110408, end: 20110408
  15. PHENERGAN [Concomitant]
     Dosage: 25 MG, Q4HR, AS PER NEDDED
     Route: 048
     Dates: start: 20110531, end: 20110601
  16. NALOXONE [Concomitant]
     Indication: REVERSAL OF OPIATE ACTIVITY
     Dosage: 0.4 MG, PRN
     Route: 042
     Dates: start: 20110407, end: 20110427
  17. SODIUM CHLORIDE [Concomitant]
     Indication: PRODUCT USED FOR UNKNOWN INDICATION
     Dosage: 1000 ML, ONCE
     Route: 042
     Dates: start: 20110408, end: 20110408
  18. SODIUM CHLORIDE [Concomitant]
     Dosage: 1000 ML, ONCE
     Route: 042
     Dates: start: 20110408, end: 20110408
  19. SODIUM CHLORIDE [Concomitant]
     Dosage: 30 ML/HOUR, PRE-OP CONTINOUS
     Route: 042
     Dates: start: 20110407, end: 20110407
  20. VANCOCIN HYDROCHLORIDE [Concomitant]
     Indication: PRODUCT USED FOR UNKNOWN INDICATION
     Dosage: 500 MG, ONCE
     Route: 042
     Dates: start: 20110928, end: 20110928
  21. MAXALT [Concomitant]
     Indication: MIGRAINE
     Dosage: 10 MG, ONCE
     Route: 048
     Dates: start: 20110928, end: 20110928
  22. CARBOCAINE [Concomitant]
     Indication: PRODUCT USED FOR UNKNOWN INDICATION
     Dosage: UNK
     Route: 065
     Dates: start: 20110928, end: 20110928
  23. VERSED [Concomitant]
     Dosage: 2 MG, UNK
     Route: 042
     Dates: start: 20110531, end: 20110531
  24. DIPHENHYDRAMINE HCL [Concomitant]
     Dosage: 25 MG, ONCE
     Route: 048
     Dates: start: 20110422, end: 20110422
  25. DIPHENHYDRAMINE HCL [Concomitant]
     Dosage: 25 MG, ONCE
     Route: 048
     Dates: start: 20110419, end: 20110419
  26. DIPHENHYDRAMINE HCL [Concomitant]
     Dosage: 25 MG, ONCE
     Route: 048
     Dates: start: 20110418, end: 20110423
  27. METHYLPEDNISOLONE SODIUM SUCCINATE [Concomitant]
     Indication: PROPHYLAXIS AGAINST TRANSPLANT REJECTION
     Dosage: 150 MG, ONCE
     Route: 042
     Dates: start: 20110409, end: 20110409
  28. METHYLPEDNISOLONE SODIUM SUCCINATE [Concomitant]
     Dosage: 60 MG, ONCE
     Route: 042
     Dates: start: 20110424, end: 20110424
  29. FENTANYL [Concomitant]
     Indication: PAIN
     Dosage: UNK, INTRA-OP MULTIPLE
     Route: 042
     Dates: start: 20110414, end: 20110414
  30. MICAFUNGIN SODIUM [Concomitant]
     Indication: PRODUCT USED FOR UNKNOWN INDICATION
     Dosage: 100 MG, QD
     Route: 042
     Dates: start: 20110419, end: 20110421
  31. MIDAZOLAM [Concomitant]
     Indication: PRODUCT USED FOR UNKNOWN INDICATION
     Dosage: 0.25-2 MG, INTRA-OP MULTIPLE
     Route: 042
     Dates: start: 20110414, end: 20110414
  32. MORPHINE [Concomitant]
     Indication: PRODUCT USED FOR UNKNOWN INDICATION
     Dosage: 2 MG, PACU
     Route: 042
     Dates: start: 20110407, end: 20110407
  33. TACROLIMUS [Concomitant]
     Dosage: 3.5 MG, BID
     Route: 048
     Dates: start: 20110426, end: 20110426
  34. THERAPEUTIC HAND-BODY LOTION [Concomitant]
     Indication: DRY SKIN
     Dosage: UNK
     Route: 061
     Dates: start: 20110419, end: 20110419
  35. THYMOGLOBULIN [Suspect]
     Dosage: 100 MG, ONCE
     Route: 042
     Dates: start: 20110422, end: 20110422
  36. LASIX [Concomitant]
     Dosage: 40 MG, ONCE
     Route: 042
     Dates: start: 20110408, end: 20110408
  37. PROCRIT [Concomitant]
     Dosage: 20000 U, 1X/W
     Route: 058
  38. FOLVITE [Concomitant]
     Dosage: 1 MG, QD
     Route: 048
     Dates: start: 20110929, end: 20110929
  39. NYSTATIN [Concomitant]
     Dosage: UNK
     Route: 048
  40. XANAX [Concomitant]
     Dosage: 0.25 MG, TID
     Route: 048
     Dates: start: 20110928, end: 20110929
  41. ACETAMINOPHEN [Concomitant]
     Dosage: 650 MG, ONCE
     Route: 048
     Dates: start: 20110409, end: 20110409
  42. ACETAMINOPHEN [Concomitant]
     Dosage: 650 MG, ONCE
     Route: 048
     Dates: start: 20110408, end: 20110408
  43. PHENERGAN [Concomitant]
     Dosage: 25 MG, Q4HR
     Route: 048
     Dates: start: 20110928, end: 20110929
  44. SODIUM CHLORIDE [Concomitant]
     Dosage: 50 ML/HOUR, CONTINOUS
     Route: 042
     Dates: start: 20110414, end: 20110416
  45. FLOMAX [Concomitant]
     Dosage: 0.4 MG, QD
     Route: 048
     Dates: start: 20110531, end: 20110601
  46. ARGATROBAN [Concomitant]
     Indication: PRODUCT USED FOR UNKNOWN INDICATION
     Dosage: UNK
     Route: 065
     Dates: start: 20110928, end: 20110928
  47. MERREM [Concomitant]
     Dosage: 500 MG, ONCE
     Route: 042
     Dates: start: 20110929, end: 20110929
  48. DIPHENHYDRAMINE HCL [Concomitant]
     Dosage: 25 MG, ONCE
     Route: 048
     Dates: start: 20110408, end: 20110408
  49. HYDROMORPHONE HCL [Concomitant]
     Dosage: UNK, CONTINOUS
     Route: 042
     Dates: start: 20110408, end: 20110413
  50. METHYLPEDNISOLONE SODIUM SUCCINATE [Concomitant]
     Dosage: 60 MG, ONCE
     Route: 042
     Dates: start: 20110423, end: 20110423
  51. METHYLPEDNISOLONE SODIUM SUCCINATE [Concomitant]
     Dosage: 150 MG, ONCE
     Route: 042
     Dates: start: 20110409, end: 20110409
  52. ONDANSETRON [Concomitant]
     Dosage: 4 MG, UNK
     Route: 042
     Dates: start: 20110407, end: 20110407
  53. PREDNISONE [Concomitant]
     Dosage: 40 MG, ONCE
     Route: 048
     Dates: start: 20110412, end: 20110412
  54. ACETAMINOPHEN [Concomitant]
     Indication: PAIN
     Dosage: 650 MG, Q4HR
     Route: 048
     Dates: start: 20110408, end: 20110408
  55. ALPRAZOLAM [Concomitant]
     Indication: PRODUCT USED FOR UNKNOWN INDICATION
     Dosage: 0.25 MG, TID
     Dates: start: 20110408, end: 20110408
  56. CARVEDILOL [Concomitant]
     Indication: PRODUCT USED FOR UNKNOWN INDICATION
     Dosage: 6.25 MG, BID
     Route: 048
     Dates: start: 20110414, end: 20110427
  57. MICAFUNGIN SODIUM [Concomitant]
     Dosage: 100 MG, QD
     Route: 042
     Dates: start: 20110418, end: 20110419
  58. OXYCODONE/ACETAMINOPHEN [Concomitant]
     Dosage: UNK
     Route: 048
     Dates: start: 20110418, end: 20110427
  59. OXYCODONE/ACETAMINOPHEN [Concomitant]
     Dosage: 65 MG/ML, Q4HR, AS PER NEEDED
     Route: 048
     Dates: start: 20110531, end: 20110601
  60. TACROLIMUS [Concomitant]
     Dosage: 3 MG, BID
     Route: 048
     Dates: start: 20110420, end: 20110425
  61. ALBUTEROL [Concomitant]
     Indication: DYSPNOEA
     Dosage: 2 PUFFS, Q4HR
     Route: 065
     Dates: start: 20110531, end: 20110601
  62. LASIX [Concomitant]
     Indication: PRODUCT USED FOR UNKNOWN INDICATION
     Dosage: 100 MG, ONCE
     Route: 042
     Dates: start: 20110409, end: 20110409
  63. LASIX [Concomitant]
     Dosage: 80 MG, ONCE
     Route: 042
     Dates: start: 20110411, end: 20110411
  64. LASIX [Concomitant]
     Dosage: 80 MG, ONCE
     Route: 042
     Dates: start: 20110409, end: 20110409
  65. CELL CEPT [Concomitant]
     Dosage: 500 MG, TID
     Route: 048
  66. PROCRIT [Concomitant]
     Dosage: 16000 U, 1X/W
     Route: 058
     Dates: start: 20110928, end: 20110929
  67. DELTASONE [Concomitant]
     Indication: PRODUCT USED FOR UNKNOWN INDICATION
     Dosage: 30 MG, ONCE
     Route: 048
  68. XANAX [Concomitant]
     Indication: ANXIETY
     Dosage: 0.25 MG, TID
     Route: 048
     Dates: start: 20090418
  69. CHAPSTICK [Concomitant]
     Indication: DRY SKIN
     Dosage: UNK
     Route: 061
     Dates: start: 20110408, end: 20110427
  70. NALOXONE [Concomitant]
     Indication: PRODUCT USED FOR UNKNOWN INDICATION
     Dosage: 0.4 MG, PRN
     Route: 042
  71. SODIUM CHLORIDE [Concomitant]
     Dosage: UNK, CONTINOUS
     Route: 042
     Dates: start: 20110407, end: 20110409
  72. SODIUM CHLORIDE [Concomitant]
     Dosage: 125 ML/HOUR, CONTINOUS
     Route: 042
     Dates: start: 20110407, end: 20110407
  73. BACTRIM [Concomitant]
     Indication: PRODUCT USED FOR UNKNOWN INDICATION
     Dosage: 1 DF, QD
     Route: 048
     Dates: start: 20110929, end: 20110929
  74. BACTRIM [Concomitant]
     Dosage: 3X/W
     Route: 048
  75. BACTRIM [Concomitant]
     Dosage: 1 TABLET (400-80 MG) UNK
     Route: 048
     Dates: start: 20110601, end: 20110601
  76. PROGRAF [Concomitant]
     Indication: PRODUCT USED FOR UNKNOWN INDICATION
     Dosage: 5 MG, QD
     Route: 048
     Dates: start: 20110929, end: 20110929
  77. PROGRAF [Concomitant]
     Dosage: 8 MG, BID
     Route: 048
     Dates: start: 20110531, end: 20110601
  78. LIDOCAINE [Concomitant]
     Dosage: UNK
     Route: 065
     Dates: start: 20110408, end: 20110408
  79. DIPHENHYDRAMINE HCL [Concomitant]
     Dosage: 50 MG, EVERY 6 HOURS
     Route: 048
     Dates: start: 20110423, end: 20110423
  80. HYDROMORPHONE HCL [Concomitant]
     Dosage: UNK, CONTINOUS
     Route: 042
     Dates: start: 20110407, end: 20110407
  81. PREDNISONE [Concomitant]
     Indication: PROPHYLAXIS AGAINST TRANSPLANT REJECTION
     Dosage: 20 MG, ONCE
     Route: 048
     Dates: start: 20110414, end: 20110414
  82. PREDNISONE [Concomitant]
     Dosage: 30 MG, ONCE
     Route: 048
     Dates: start: 20110413, end: 20110413
  83. PREDNISONE [Concomitant]
     Dosage: 7.5 MG, QD
     Route: 048
  84. SODIUM CITRATE [Concomitant]
     Indication: PRODUCT USED FOR UNKNOWN INDICATION
     Dosage: 3 ML,  ONCE IN HEMODIALYSIS
     Route: 065
     Dates: start: 20110427, end: 20110427
  85. CALAMINE LOTION [Concomitant]
     Indication: PRURITUS
     Dosage: UNK, EVERY 6 HOURS
     Route: 061
     Dates: start: 20110423, end: 20110427
  86. ESOMEPRAZOLE [Concomitant]
     Indication: PRODUCT USED FOR UNKNOWN INDICATION
     Dosage: 20 MG, QD
     Route: 042
     Dates: start: 20110408, end: 20110410
  87. FLUCONAZOLE [Concomitant]
     Indication: PRODUCT USED FOR UNKNOWN INDICATION
     Dosage: 200 MG, QD
     Route: 042
     Dates: start: 20110422, end: 20110422
  88. OXYCODONE/ACETAMINOPHEN [Concomitant]
     Indication: PAIN
     Dosage: UNK
     Route: 048
     Dates: start: 20110413, end: 20110418
  89. OXYCODONE/ACETAMINOPHEN [Concomitant]
     Dosage: 65 MG/ML, ONCE
     Route: 048
     Dates: start: 20110531, end: 20110531
  90. INSULIN GLARGINE [Concomitant]
     Indication: PRODUCT USED FOR UNKNOWN INDICATION
     Dosage: 24 U, QD
     Route: 058
     Dates: start: 20111027
  91. THYMOGLOBULIN [Suspect]
     Indication: PROPHYLAXIS AGAINST TRANSPLANT REJECTION
     Dosage: 100 MG, ONCE
     Route: 042
     Dates: start: 20110407, end: 20110407
  92. THYMOGLOBULIN [Suspect]
     Dosage: 100 MG, ONCE
     Route: 042
     Dates: start: 20110409, end: 20110409
  93. LASIX [Concomitant]
     Dosage: 40 MG, BID
     Route: 042
     Dates: start: 20110419, end: 20110427
  94. CELL CEPT [Concomitant]
     Dosage: 750 MG, BID
     Route: 042
     Dates: start: 20110413, end: 20110418
  95. B COMPLEX WITH VITAMIN C [Concomitant]
     Indication: PRODUCT USED FOR UNKNOWN INDICATION
     Dosage: 1 DF, QD
     Route: 048
  96. DILAUDID [Concomitant]
     Dosage: 0.2 MG, PRN
     Route: 042
  97. DIPHENHYDRAMINE HCL [Concomitant]
     Dosage: 50 MG, EVERY 6 HOURS PRN
     Route: 042
     Dates: start: 20110423, end: 20110427
  98. DIPHENHYDRAMINE HCL [Concomitant]
     Dosage: 25 MG, ONCE
     Route: 048
     Dates: start: 20110531, end: 20110531
  99. SODIUM CHLORIDE [Concomitant]
     Indication: INTRAOPERATIVE CARE
     Dosage: 1000 ML, UNK
     Route: 050
     Dates: start: 20110928, end: 20110928
  100. SODIUM CHLORIDE [Concomitant]
     Dosage: UNK
     Route: 065
     Dates: start: 20110408, end: 20110408
  101. SODIUM CHLORIDE [Concomitant]
     Dosage: 50 ML/HOUR , CONTINOUS
     Route: 042
     Dates: start: 20110409, end: 20110411
  102. SODIUM CHLORIDE [Concomitant]
     Dosage: 125 ML/HOUR, CONTINOUS
     Route: 042
     Dates: start: 20110407, end: 20110409
  103. SODIUM CHLORIDE [Concomitant]
     Dosage: 1000 ML, UNK, PER PROCEDURE
     Route: 042
     Dates: start: 20110531, end: 20110531
  104. VITAMIN D [Concomitant]
     Indication: PRODUCT USED FOR UNKNOWN INDICATION
     Dosage: 3000 U, QD
     Route: 048
     Dates: start: 20110929, end: 20110929
  105. PROTONIX [Concomitant]
     Indication: PRODUCT USED FOR UNKNOWN INDICATION
     Dosage: 40 MG, QD
     Route: 048
     Dates: start: 20110929, end: 20110929
  106. CALCIUM GLUCONATE [Concomitant]
     Indication: PRODUCT USED FOR UNKNOWN INDICATION
     Dosage: 2 G, ONCE
     Route: 042
     Dates: start: 20110424, end: 20110424
  107. DIPHENHYDRAMINE HCL [Concomitant]
     Dosage: 25 MG, ONCE
     Route: 048
     Dates: start: 20110407, end: 20110407
  108. PREDNISONE [Concomitant]
     Dosage: 10 MG, QD
     Route: 048
     Dates: start: 20110601, end: 20110601
  109. SODIUM CITRATE [Concomitant]
     Dosage: UNK
  110. FAMOTIDINE [Concomitant]
     Indication: PRODUCT USED FOR UNKNOWN INDICATION
     Dosage: 40 MG, QD
     Route: 048
     Dates: start: 20110410, end: 20110427
  111. FLUCONAZOLE [Concomitant]
     Dosage: 200 MG, QD
     Route: 042
     Dates: start: 20110416, end: 20110418
  112. TACROLIMUS [Concomitant]
     Indication: PROPHYLAXIS AGAINST TRANSPLANT REJECTION
     Dosage: 1 MG, BID
     Route: 048
     Dates: start: 20110418, end: 20110419
  113. TAMSULOSIN HCL [Concomitant]
     Indication: PRODUCT USED FOR UNKNOWN INDICATION
     Dosage: 0.4 MG, UNK, AT BED TIME
     Route: 048
     Dates: start: 20110424, end: 20110427
  114. VORICONAZOLE [Concomitant]
     Indication: PRODUCT USED FOR UNKNOWN INDICATION
     Dosage: 200 MG, TID
     Route: 048
     Dates: start: 20110422, end: 20110424
  115. DEXILANT [Concomitant]
  116. THYMOGLOBULIN [Suspect]
     Dosage: 100 MG, ONCE
     Route: 042
     Dates: start: 20110413, end: 20110413
  117. MUPIROCIN CALCIUM [Concomitant]
     Indication: PRODUCT USED FOR UNKNOWN INDICATION
     Dosage: 1 G, Q12HR
     Route: 045
     Dates: start: 20110411, end: 20110417
  118. FOLVITE [Concomitant]
     Indication: PRODUCT USED FOR UNKNOWN INDICATION
     Dosage: 1 MG, QD
     Route: 048
     Dates: start: 20090117
  119. NYSTATIN [Concomitant]
     Indication: PRODUCT USED FOR UNKNOWN INDICATION
     Dosage: 5 ML, TID
     Route: 048
     Dates: start: 20110408, end: 20110427
  120. DELTASONE [Concomitant]
     Dosage: 5 MG, QD
     Route: 048
  121. ACETAMINOPHEN [Concomitant]
     Dosage: 650 MG, ONCE
     Route: 048
     Dates: start: 20110408, end: 20110408
  122. ACETAMINOPHEN [Concomitant]
     Dosage: 650 MG, ONCE
     Route: 048
     Dates: start: 20110407, end: 20110407
  123. PHENERGAN [Concomitant]
     Indication: ANTIEMETIC SUPPORTIVE CARE
     Dosage: 12.5 MG, Q4HR
     Route: 042
  124. PHENERGAN [Concomitant]
     Indication: NAUSEA
     Dosage: 6.25 MG, UNK
     Route: 042
     Dates: start: 20110928, end: 20110928
  125. DIPHENHYDRAMINE HCL [Concomitant]
     Indication: PRODUCT USED FOR UNKNOWN INDICATION
     Dosage: 25 MG, ONCE
     Route: 042
     Dates: start: 20110421, end: 20110421
  126. DIPHENHYDRAMINE HCL [Concomitant]
     Dosage: UNK
     Route: 042
     Dates: start: 20110419, end: 20110426
  127. DIPHENHYDRAMINE HCL [Concomitant]
     Dosage: UNK, EVERY 6 HOURS PRN
     Route: 042
     Dates: start: 20110407, end: 20110419
  128. DIPHENHYDRAMINE HCL [Concomitant]
     Dosage: UNK
     Route: 065
     Dates: start: 20111027, end: 20111028
  129. SODIUM CHLORIDE [Concomitant]
     Dosage: 500 ML, ONCE
     Route: 042
     Dates: start: 20110408, end: 20110408
  130. SODIUM CHLORIDE [Concomitant]
     Dosage: 70 ML/HOUR, CONTINOUS
     Route: 042
     Dates: start: 20110414, end: 20110414
  131. SODIUM CHLORIDE [Concomitant]
     Dosage: UNK
     Route: 065
     Dates: start: 20110409, end: 20110409
  132. PROGRAF [Concomitant]
     Dosage: 5 MG, QD
     Route: 048
  133. ATROPINE [Concomitant]
     Indication: BRADYCARDIA
     Dosage: 0.4 MG, PRN
     Route: 042
     Dates: start: 20110928, end: 20110928
  134. COREG [Concomitant]
     Dosage: 12.5 MG, BID
     Route: 048
     Dates: start: 20110531, end: 20110601
  135. COREG [Concomitant]
     Dosage: 25 MG, UNK
     Route: 048
  136. ZOFRAN [Concomitant]
     Indication: PRODUCT USED FOR UNKNOWN INDICATION
     Dosage: 4 MG, UNK
     Route: 042
     Dates: start: 20110928, end: 20110928
  137. HYDROMORPHONE HCL [Concomitant]
     Indication: PRODUCT USED FOR UNKNOWN INDICATION
     Dosage: 1 MG, ONCE
     Route: 042
     Dates: start: 20110408, end: 20110408
  138. HYDROMORPHONE HCL [Concomitant]
     Dosage: UNK, CONTINOUS
     Route: 042
     Dates: start: 20110408, end: 20110408
  139. METHYLPEDNISOLONE SODIUM SUCCINATE [Concomitant]
     Dosage: 500 MG, ONCE
     Route: 042
     Dates: start: 20110407, end: 20110407
  140. PREDNISONE [Concomitant]
     Dosage: 60 MG, ONCE
     Route: 048
     Dates: start: 20110411, end: 20110411
  141. PREDNISONE [Concomitant]
     Dosage: 80 MG, ONCE
     Route: 048
     Dates: start: 20110410, end: 20110410
  142. LOPERAMIDE [Concomitant]
     Indication: DIARRHOEA
     Dosage: 2 MG,
     Route: 048
     Dates: start: 20110416, end: 20110427
  143. TACROLIMUS [Concomitant]
     Dosage: 2 MG, BID
     Route: 048
     Dates: start: 20110419, end: 20110420
  144. ALBUTEROL [Concomitant]
     Indication: WHEEZING
     Dosage: UNK
     Route: 065
  145. THYMOGLOBULIN [Suspect]
     Dosage: 100 MG, ONCE
     Route: 042
     Dates: start: 20110420, end: 20110420
  146. LASIX [Concomitant]
     Dosage: 60 MG, ONCE
     Route: 042
     Dates: start: 20110408, end: 20110408
  147. LASIX [Concomitant]
     Dosage: 80 MG, ONCE
  148. CELL CEPT [Concomitant]
     Indication: PROPHYLAXIS AGAINST TRANSPLANT REJECTION
     Dosage: 1 G, BID
     Route: 048
  149. CELL CEPT [Concomitant]
     Dosage: 1 G, ONCE
     Route: 048
     Dates: start: 20110407, end: 20110407
  150. ZOLPIDEM [Concomitant]
     Dosage: 10 MG, AT BED TIME
     Route: 048
     Dates: start: 20110408, end: 20110427
  151. GABAPENTIN [Concomitant]
     Indication: PRODUCT USED FOR UNKNOWN INDICATION
     Dosage: 200 MG, 3X/W
     Route: 048
     Dates: start: 20110408, end: 20110427
  152. NYSTATIN [Concomitant]
     Dosage: 5 ML, QID
     Route: 048
     Dates: start: 20111027
  153. XANAX [Concomitant]
     Dosage: 0.25 MG, TID, AS PER NEED
     Route: 048
     Dates: start: 20110531, end: 20110601
  154. PROCHLORPERAZINE [Concomitant]
     Indication: NAUSEA
     Dosage: 10 MG, UNK, EVERY 6 HOURS
     Route: 042
     Dates: start: 20110408, end: 20110427
  155. PHENERGAN [Concomitant]
     Dosage: 25 MG, Q4HR (AS NEEDED)
     Route: 048
     Dates: start: 20110426
  156. SODIUM CHLORIDE [Concomitant]
     Dosage: 42 ML, Q1HR
     Route: 042
     Dates: start: 20110928, end: 20110928
  157. SODIUM CHLORIDE [Concomitant]
     Dosage: 30 ML/HOUR, CONTINOUS
     Route: 042
     Dates: start: 20110411, end: 20110414
  158. COUMADIN [Concomitant]
     Indication: HEPARIN-INDUCED THROMBOCYTOPENIA
     Route: 065
  159. LIDOCAINE [Concomitant]
     Dosage: UNK
     Route: 065
     Dates: start: 20110414, end: 20110414
  160. MAXALT [Concomitant]
     Dosage: 10 MG, QD, PRN
     Route: 048
  161. VITAMIN D [Concomitant]
     Dosage: 1000 U, TID
     Route: 048
     Dates: start: 20110701
  162. MERREM [Concomitant]
     Dosage: 500 MG, Q12HR
     Route: 042
     Dates: start: 20110929, end: 20110929
  163. ONDANSETRON [Concomitant]
     Dosage: 4 MG, EVERY 8 HOURS
     Route: 042
     Dates: start: 20110407, end: 20110408
  164. PREDNISONE [Concomitant]
     Dosage: 5 MG, QD
     Route: 048
     Dates: start: 20111027
  165. ACETAMINOPHEN [Concomitant]
     Dosage: 650 MG, ONCE
     Route: 048
     Dates: start: 20110531, end: 20110531
  166. B COMPLEX-VITAMIN C-FOLIC ACID [Concomitant]
     Indication: PRODUCT USED FOR UNKNOWN INDICATION
     Dosage: 1 CAPSULE, QD
     Route: 048
     Dates: start: 20110408, end: 20110427
  167. DOPAMINE HCL [Concomitant]
     Indication: PRODUCT USED FOR UNKNOWN INDICATION
     Dosage: UNK
     Route: 042
     Dates: start: 20110408, end: 20110410
  168. MEPERIDINE HCL [Concomitant]
     Indication: PRODUCT USED FOR UNKNOWN INDICATION
     Dosage: 12.5 MG, UNK
     Route: 042
     Dates: start: 20110407, end: 20110407
  169. OXYCODONE/ACETAMINOPHEN [Concomitant]
     Dosage: 325 MG, PRN, EVERY 4 HOUR
     Route: 048
  170. PROMETHAZINE [Concomitant]
     Indication: NAUSEA
     Dosage: 12.5 MG, Q4HR
     Route: 042
     Dates: start: 20110407, end: 20110427
  171. SODIUM BICARBONATE [Concomitant]
     Indication: PRODUCT USED FOR UNKNOWN INDICATION
     Dosage: 1300 MG, TID
     Route: 048
     Dates: start: 20110413, end: 20110427
  172. NEURONTIN [Concomitant]
     Indication: PRODUCT USED FOR UNKNOWN INDICATION
     Dosage: 200 MG, QD
     Route: 048
     Dates: start: 20110601, end: 20110601
  173. DEXILANT [Concomitant]
     Indication: PRODUCT USED FOR UNKNOWN INDICATION
     Dosage: 60 MG, QD (AS NEEDED)
     Route: 048
     Dates: start: 20110531, end: 20110601
  174. THYMOGLOBULIN [Suspect]
     Dosage: 100 MG, ONCE
     Route: 042
     Dates: start: 20110418, end: 20110418
  175. LASIX [Concomitant]
     Dosage: 80 MG, ONCE
     Route: 042
     Dates: start: 20110410, end: 20110410
  176. CELL CEPT [Concomitant]
     Dosage: 1 G, BID
     Route: 042
     Dates: start: 20110408, end: 20110413
  177. CELL CEPT [Concomitant]
     Dosage: 500 MG, ONCE
     Route: 048
     Dates: start: 20110531, end: 20110531
  178. PEPCID [Concomitant]
     Indication: PRODUCT USED FOR UNKNOWN INDICATION
     Dosage: 40 MG, QD
     Route: 048
  179. PAROXETINE [Concomitant]
     Indication: PRODUCT USED FOR UNKNOWN INDICATION
     Dosage: 30 MG, QD
     Route: 048
     Dates: start: 20110408, end: 20110425
  180. PERCOCET [Concomitant]
     Dosage: UNK
     Route: 048
     Dates: start: 20110928, end: 20110929
  181. XANAX [Concomitant]
     Dosage: 0.25 MG, TID. PRN
     Route: 048
     Dates: start: 20090418
  182. ACETAMINOPHEN [Concomitant]
     Dosage: 650 MG, ONCE
     Route: 048
     Dates: start: 20110420, end: 20110420
  183. ACETAMINOPHEN [Concomitant]
     Dosage: 650 MG, ONCE
     Route: 048
     Dates: start: 20110419, end: 20110427
  184. SODIUM CHLORIDE [Concomitant]
     Dosage: 1000 ML, UNK
     Route: 065
     Dates: start: 20110407, end: 20110407
  185. PROGRAF [Concomitant]
     Dosage: 6 MG, QD
     Route: 048
     Dates: start: 20110929, end: 20110929
  186. FLOMAX [Concomitant]
     Indication: PRODUCT USED FOR UNKNOWN INDICATION
     Dosage: 0.4 MG, QD
     Route: 048
     Dates: start: 20110928, end: 20110929
  187. FLOMAX [Concomitant]
     Dosage: 0.4 MG, QD
     Route: 048
     Dates: start: 20110426
  188. LIDOCAINE [Concomitant]
     Indication: PRODUCT USED FOR UNKNOWN INDICATION
     Dosage: 100 MG, PRN
     Route: 065
     Dates: start: 20110928, end: 20110928
  189. MAXALT [Concomitant]
  190. COREG [Concomitant]
     Indication: PRODUCT USED FOR UNKNOWN INDICATION
     Dosage: 25 MG, BID
     Route: 048
     Dates: start: 20110929, end: 20110929
  191. MERREM [Concomitant]
     Indication: PRODUCT USED FOR UNKNOWN INDICATION
     Dosage: 1 G, BID
     Route: 042
     Dates: start: 20110928, end: 20110928
  192. DIPHENHYDRAMINE HCL [Concomitant]
     Dosage: 25 MG, ONCE
     Route: 048
     Dates: start: 20110420, end: 20110420
  193. DIPHENHYDRAMINE HCL [Concomitant]
     Dosage: 25 MG, ONCE
     Route: 048
     Dates: start: 20110409, end: 20110409
  194. ONDANSETRON [Concomitant]
     Indication: NAUSEA
     Dosage: 4 MG, ONCE
     Route: 042
     Dates: start: 20110408, end: 20110408
  195. PREDNISONE [Concomitant]
     Dosage: 5 MG, QD
     Route: 048
     Dates: start: 20110415, end: 20110427
  196. SODIUM CITRATE [Concomitant]
     Dosage: 3 ML, ONCE IN HEMODIALYSIS
     Route: 065
     Dates: start: 20110409, end: 20110409
  197. ACETAMINOPHEN [Concomitant]
     Indication: PYREXIA
     Dosage: 650 MG, Q4HR
     Route: 048
     Dates: start: 20110408, end: 20110427
  198. WITCH HAZEL-GLYCERIN PADS [Concomitant]
     Indication: HAEMORRHOIDS
     Dosage: UNK
     Route: 061
     Dates: start: 20110424, end: 20110427
  199. TECHNETIUM (99M TC) MERTIATIDE [Concomitant]
     Indication: DIAGNOSTIC PROCEDURE
     Dosage: 15 MCI, ONCE IN HEMOLYSIS
     Route: 042
     Dates: start: 20110415, end: 20110415
  200. CORTICOSTEROIDS [Concomitant]
     Indication: PROPHYLAXIS AGAINST TRANSPLANT REJECTION
     Route: 065
  201. CELL CEPT [Concomitant]
     Dosage: 250 MG, TID
     Route: 048
  202. PEPCID [Concomitant]
     Dosage: 20 MG, ONCE
     Route: 042
     Dates: start: 20110928, end: 20110928
  203. ZOLPIDEM [Concomitant]
     Indication: PRODUCT USED FOR UNKNOWN INDICATION
     Dosage: 40 MG, QD
     Route: 048
  204. DOCUSATE SODIUM [Concomitant]
     Indication: PRODUCT USED FOR UNKNOWN INDICATION
     Dosage: 100 MG, BID
     Route: 048
     Dates: start: 20110408, end: 20110427
  205. DELTASONE [Concomitant]
     Dosage: 10 MG, QD
     Route: 048
     Dates: start: 20110929, end: 20110929
  206. ACETAMINOPHEN [Concomitant]
     Dosage: 650 MG, ONCE
     Route: 048
     Dates: start: 20110418, end: 20110418
  207. DIPHENHYDRAMINE HCL [Concomitant]
     Indication: PRURITUS
     Dosage: 50 MG, ONCE
     Route: 042
     Dates: start: 20110423, end: 20110423
  208. SODIUM CHLORIDE [Concomitant]
     Dosage: 1000 ML, ONCE
     Route: 042
     Dates: start: 20110408, end: 20110408
  209. SODIUM CHLORIDE [Concomitant]
     Dosage: 42 ML/ HOUR
     Route: 042
     Dates: start: 20110407, end: 20110407
  210. SODIUM CHLORIDE [Concomitant]
     Dosage: 80 ML/HOUR, PRE-OP CONTINOUS
     Route: 042
     Dates: start: 20110407, end: 20110407
  211. PROGRAF [Concomitant]
     Dosage: 80 MG, BID
     Route: 048
  212. PROGRAF [Concomitant]
     Dosage: 6 MG, QD
     Route: 048
  213. VERSED [Concomitant]
     Indication: PRODUCT USED FOR UNKNOWN INDICATION
     Dosage: 2 MG, ONCE
     Route: 042
     Dates: start: 20110928, end: 20110928
  214. ALTEPLASE [Concomitant]
     Indication: PRODUCT USED FOR UNKNOWN INDICATION
     Dosage: 4 MG, ONCE
     Route: 042
     Dates: start: 20110408, end: 20110408
  215. MAGNESIUM SULFATE [Concomitant]
     Indication: PRODUCT USED FOR UNKNOWN INDICATION
     Dosage: 1 G, EVERY HOUR
     Route: 042
     Dates: start: 20110424, end: 20110424
  216. METHYLPEDNISOLONE SODIUM SUCCINATE [Concomitant]
     Dosage: 250 MG, ONCE
     Route: 042
     Dates: start: 20110408, end: 20110408
  217. ONDANSETRON [Concomitant]
     Indication: PRODUCT USED FOR UNKNOWN INDICATION
     Dosage: 4 MG, ONCE
     Route: 042
     Dates: start: 20110418, end: 20110418
  218. ONDANSETRON [Concomitant]
     Indication: VOMITING
     Dosage: 4 MG, Q4HR
     Route: 042
     Dates: start: 20110419, end: 20110427
  219. CINACALCET HYDROCHLORIDE [Concomitant]
     Indication: PRODUCT USED FOR UNKNOWN INDICATION
     Dosage: 30 MG, QD
     Route: 048
     Dates: start: 20110408, end: 20110408
  220. FENTANYL [Concomitant]
     Dosage: 25-100 MCG, UNK
     Route: 042
     Dates: start: 20110531, end: 20110531
  221. SERTRALINE HYDROCHLORIDE [Concomitant]
     Indication: PRODUCT USED FOR UNKNOWN INDICATION
     Dosage: 50 MG, UNK, EVERY EVENING
     Route: 048
     Dates: start: 20110425, end: 20110427
  222. TACROLIMUS [Concomitant]
     Dosage: 5 MG, BID
     Route: 048
     Dates: start: 20110426, end: 20110427
  223. IMODIUM [Concomitant]
     Indication: DIARRHOEA
     Dosage: 2 MG, Q4HR, AS PER NEEDED
     Route: 048
     Dates: start: 20110531, end: 20110601
  224. LIDOCAINE-SODIUM BICARBONATE [Concomitant]
     Indication: PRODUCT USED FOR UNKNOWN INDICATION
     Dosage: 1-20 ML, UNK
     Route: 065
     Dates: start: 20110531, end: 20110531
  225. LANSOPRAZOLE [Concomitant]
     Indication: PRODUCT USED FOR UNKNOWN INDICATION
     Dosage: 30 MG, BID
     Route: 048
     Dates: start: 20110531, end: 20110601

REACTIONS (20)
  - DEHYDRATION [None]
  - VOMITING [None]
  - NAUSEA [None]
  - VISION BLURRED [None]
  - HEADACHE [None]
  - HYPEROSMOLAR STATE [None]
  - ANAEMIA [None]
  - HYPERKALAEMIA [None]
  - HYPERGLYCAEMIA [None]
  - LYMPHOCYTE COUNT DECREASED [None]
  - COMPLICATIONS OF TRANSPLANTED KIDNEY [None]
  - KIDNEY TRANSPLANT REJECTION [None]
  - TRANSPLANT REJECTION [None]
  - PARVOVIRUS INFECTION [None]
  - CYTOMEGALOVIRUS VIRAEMIA [None]
  - GASTROENTERITIS [None]
  - PYELONEPHRITIS ACUTE [None]
  - THROMBOCYTOPENIA [None]
  - RENAL TUBULAR NECROSIS [None]
  - ABDOMINAL PAIN [None]
